FAERS Safety Report 18354796 (Version 2)
Quarter: 2020Q4

REPORT INFORMATION
  Report Type: Spontaneous
  Country: US (occurrence: US)
  Receive Date: 20201007
  Receipt Date: 20201029
  Transmission Date: 20210114
  Serious: Yes (Death, Life-Threatening, Hospitalization, Other)
  Sender: FDA-Public Use
  Company Number: US-AUROBINDO-AUR-APL-2020-050341

PATIENT
  Age: 76 Year
  Sex: Male

DRUGS (9)
  1. CICLOSPORIN [Suspect]
     Active Substance: CYCLOSPORINE
     Indication: GIANT CELL MYOCARDITIS
     Dosage: 75 MILLIGRAM, TWO TIMES A DAY
     Route: 065
  2. MEXILETINE [Concomitant]
     Active Substance: MEXILETINE
     Indication: VENTRICULAR TACHYCARDIA
     Dosage: UNK
     Route: 065
  3. AZATHIOPRINE. [Suspect]
     Active Substance: AZATHIOPRINE
     Indication: GIANT CELL MYOCARDITIS
     Dosage: 50 MILLIGRAM, ONCE A DAY
     Route: 065
  4. METHYLPREDNISOLONE. [Suspect]
     Active Substance: METHYLPREDNISOLONE
     Dosage: 1 GRAM, ONCE A DAY (PULSE-DOSE)
     Route: 042
  5. RABBIT ANTI HUMAN THYMOCYTE IMMUNOGLOBULIN [Suspect]
     Active Substance: LAPINE T-LYMPHOCYTE IMMUNE GLOBULIN
     Indication: GIANT CELL MYOCARDITIS
     Dosage: 1 MILLIGRAM/KILOGRAM, 1 TOTAL
     Route: 065
  6. MYCOPHENOLATE MOFETIL. [Suspect]
     Active Substance: MYCOPHENOLATE MOFETIL
     Indication: GIANT CELL MYOCARDITIS
     Dosage: 500 MILLIGRAM, TWO TIMES A DAY
     Route: 065
  7. METHYLPREDNISOLONE. [Suspect]
     Active Substance: METHYLPREDNISOLONE
     Indication: GIANT CELL MYOCARDITIS
     Dosage: UNK (RAPID TAPERING IN THE FOLLOWING DAYS TO STRESS DOSAGES)
     Route: 042
  8. CICLOSPORIN [Suspect]
     Active Substance: CYCLOSPORINE
     Dosage: 50 MILLIGRAM, TWO TIMES A DAY
     Route: 065
  9. LIDOCAINE. [Concomitant]
     Active Substance: LIDOCAINE
     Indication: VENTRICULAR TACHYCARDIA
     Dosage: UNK
     Route: 065

REACTIONS (8)
  - Staphylococcal sepsis [Fatal]
  - Device related infection [Fatal]
  - Cardiac failure acute [Fatal]
  - Cytomegalovirus infection reactivation [Recovering/Resolving]
  - Transaminases increased [Unknown]
  - Tracheitis [Unknown]
  - Septic shock [Fatal]
  - Clostridium difficile colitis [Fatal]
